FAERS Safety Report 14741365 (Version 4)
Quarter: 2019Q1

REPORT INFORMATION
  Report Type: Spontaneous
  Country: DE (occurrence: DE)
  Receive Date: 20180410
  Receipt Date: 20190117
  Transmission Date: 20190417
  Serious: Yes (Other)
  Sender: FDA-Public Use
  Company Number: DE-ROCHE-2103994

PATIENT
  Age: 55 Year
  Sex: Female

DRUGS (7)
  1. PHENOBARBITAL. [Interacting]
     Active Substance: PHENOBARBITAL
     Indication: MYOCLONIC EPILEPSY
     Route: 065
  2. LUMINALE [Concomitant]
     Active Substance: PHENOBARBITAL
  3. ERGENYL [Interacting]
     Active Substance: VALPROIC ACID
     Indication: MYOCLONIC EPILEPSY
     Route: 065
  4. RIVOTRIL [Suspect]
     Active Substance: CLONAZEPAM
     Indication: MYOCLONIC EPILEPSY
     Route: 048
  5. RIVOTRIL [Interacting]
     Active Substance: CLONAZEPAM
     Route: 048
  6. VALPROAT HEXAL [Interacting]
     Active Substance: DIVALPROEX SODIUM
     Indication: MYOCLONIC EPILEPSY
     Dosage: 28 DROPS IN THE MORNING AND 42 DROPS IN THE EVENING
     Route: 048
  7. ORFIRIL [Concomitant]
     Active Substance: VALPROATE SODIUM

REACTIONS (3)
  - Incontinence [Not Recovered/Not Resolved]
  - Petit mal epilepsy [Not Recovered/Not Resolved]
  - Drug interaction [Unknown]

NARRATIVE: CASE EVENT DATE: 2015
